FAERS Safety Report 7477787-7 (Version None)
Quarter: 2011Q2

REPORT INFORMATION
  Report Type: 
  Country: None (occurrence: None)
  Receive Date: 20110513
  Receipt Date: 20110429
  Transmission Date: 20111010
  Serious: Yes (Hospitalization, Other)
  Sender: FDA-Public Use
  Company Number: US-ELI_LILLY_AND_COMPANY-US201105003504

PATIENT
  Age: 91 Year
  Sex: Female

DRUGS (2)
  1. LANTUS [Concomitant]
     Dosage: 12 U, EACH MORNING
  2. HUMALOG [Suspect]
     Dosage: UNK, PRN

REACTIONS (7)
  - PANCREATITIS ACUTE [None]
  - DIABETIC KETOACIDOSIS [None]
  - DIARRHOEA [None]
  - INCORRECT PRODUCT STORAGE [None]
  - STRESS [None]
  - CEREBROVASCULAR DISORDER [None]
  - LOSS OF CONSCIOUSNESS [None]
